FAERS Safety Report 7098860-1 (Version None)
Quarter: 2010Q4

REPORT INFORMATION
  Report Type: 
  Country: None (occurrence: None)
  Receive Date: 20101112
  Receipt Date: 20101025
  Transmission Date: 20110411
  Serious: Yes (Hospitalization)
  Sender: FDA-Public Use
  Company Number: US-SANOFI-AVENTIS-2010SA068357

PATIENT

DRUGS (2)
  1. PLAVIX [Suspect]
     Route: 065
  2. PLAVIX [Suspect]
     Route: 065

REACTIONS (1)
  - ARTHROPATHY [None]
